FAERS Safety Report 21679519 (Version 1)
Quarter: 2022Q4

REPORT INFORMATION
  Report Type: Spontaneous
  Country: US (occurrence: US)
  Receive Date: 20221205
  Receipt Date: 20221205
  Transmission Date: 20230113
  Serious: No
  Sender: FDA-Public Use
  Company Number: US-STRIDES ARCOLAB LIMITED-2022SP010936

PATIENT
  Age: 44 Year
  Sex: Female

DRUGS (2)
  1. AMANTADINE [Suspect]
     Active Substance: AMANTADINE
     Indication: Leukoencephalopathy
     Dosage: UNK
     Route: 065
  2. LORAZEPAM [Concomitant]
     Active Substance: LORAZEPAM
     Indication: Leukoencephalopathy
     Dosage: UNK
     Route: 065

REACTIONS (1)
  - Off label use [Unknown]
